FAERS Safety Report 15789797 (Version 1)
Quarter: 2019Q1

REPORT INFORMATION
  Report Type: Spontaneous
  Country: TR (occurrence: TR)
  Receive Date: 20190104
  Receipt Date: 20190104
  Transmission Date: 20190417
  Serious: Yes (Hospitalization)
  Sender: FDA-Public Use
  Company Number: TR-MYLANLABS-2018M1098160

PATIENT
  Age: 21 Year
  Sex: Female
  Weight: 92 kg

DRUGS (4)
  1. VALPROIC ACID. [Suspect]
     Active Substance: VALPROIC ACID
     Indication: SCHIZOPHRENIA
     Dosage: INCREASED UP TO 1500 MG/DAY
     Route: 065
  2. OLANZAPINE. [Interacting]
     Active Substance: OLANZAPINE
     Indication: SCHIZOPHRENIA
     Dosage: 10 MILLIGRAM, QD
     Route: 065
  3. CLONAZEPAM. [Concomitant]
     Active Substance: CLONAZEPAM
     Indication: SCHIZOPHRENIA
     Dosage: 4 MILLIGRAM, QD
     Route: 065
  4. VALPROIC ACID. [Interacting]
     Active Substance: VALPROIC ACID
     Dosage: 1500 MILLIGRAM, QD
     Route: 065

REACTIONS (2)
  - Hyperammonaemic encephalopathy [Recovered/Resolved]
  - Drug interaction [Recovered/Resolved]
